FAERS Safety Report 4411120-X (Version None)
Quarter: 2004Q3

REPORT INFORMATION
  Report Type: 
  Country: None (occurrence: None)
  Receive Date: 20040726
  Receipt Date: 20040709
  Transmission Date: 20050211
  Serious: Yes (Hospitalization)
  Sender: FDA-Public Use
  Company Number: 169029

PATIENT
  Age: 45 Year
  Sex: Female

DRUGS (1)
  1. AVONEX [Suspect]
     Indication: MULTIPLE SCLEROSIS
     Dates: start: 20020419

REACTIONS (5)
  - HAEMATOCRIT DECREASED [None]
  - HAEMOGLOBIN DECREASED [None]
  - RED BLOOD CELL COUNT DECREASED [None]
  - URINARY TRACT INFECTION [None]
  - WHITE BLOOD CELL COUNT INCREASED [None]
